FAERS Safety Report 21984702 (Version 1)
Quarter: 2023Q1

REPORT INFORMATION
  Report Type: Report from Study
  Country: US (occurrence: US)
  Receive Date: 20230213
  Receipt Date: 20230213
  Transmission Date: 20230418
  Serious: Yes (Hospitalization, Other)
  Sender: FDA-Public Use
  Company Number: US-SA-SAC20221209001465

PATIENT
  Age: 53 Year
  Sex: Male

DRUGS (1)
  1. BELUMOSUDIL MESYLATE [Suspect]
     Active Substance: BELUMOSUDIL MESYLATE
     Indication: Chronic graft versus host disease
     Dosage: 200 MG, TOTAL
     Route: 048
     Dates: start: 20220620

REACTIONS (5)
  - Hospitalisation [Unknown]
  - Neuropathy peripheral [Unknown]
  - Cellulitis [Unknown]
  - Peripheral swelling [Unknown]
  - Limb discomfort [Unknown]

NARRATIVE: CASE EVENT DATE: 20221201
